FAERS Safety Report 25154859 (Version 1)
Quarter: 2025Q2

REPORT INFORMATION
  Report Type: Spontaneous
  Country: CN (occurrence: CN)
  Receive Date: 20250403
  Receipt Date: 20250403
  Transmission Date: 20250717
  Serious: Yes (Hospitalization)
  Sender: BAYER
  Company Number: CN-BAYER-2025A040164

PATIENT
  Age: 30 Year
  Sex: Female

DRUGS (1)
  1. YAZ [Suspect]
     Active Substance: DROSPIRENONE\ETHINYL ESTRADIOL
     Route: 048

REACTIONS (3)
  - Pelvic venous thrombosis [None]
  - Peripheral swelling [None]
  - Erythema [None]

NARRATIVE: CASE EVENT DATE: 20250322
